FAERS Safety Report 19429807 (Version 1)
Quarter: 2021Q2

REPORT INFORMATION
  Report Type: Spontaneous
  Country: CN (occurrence: CN)
  Receive Date: 20210617
  Receipt Date: 20210617
  Transmission Date: 20210717
  Serious: Yes (Hospitalization)
  Sender: FDA-Public Use
  Company Number: NVSC2021CN132348

PATIENT
  Age: 57 Year
  Sex: Male
  Weight: 70 kg

DRUGS (5)
  1. ASPIRIN. [Concomitant]
     Active Substance: ASPIRIN
     Indication: CEREBROVASCULAR DISORDER
     Dosage: 1 TABLET
     Route: 048
     Dates: start: 20200314, end: 20200330
  2. CITICOLINE SODIUM [Concomitant]
     Active Substance: CITICOLINE SODIUM
     Indication: CEREBROVASCULAR DISORDER
     Dosage: 0.5 G, QD
     Route: 042
     Dates: start: 20200314, end: 20200330
  3. RABEPRAZOLE SODIUM. [Concomitant]
     Active Substance: RABEPRAZOLE SODIUM
     Indication: CEREBROVASCULAR DISORDER
     Dosage: 1 TABLET
     Route: 048
     Dates: start: 20200314, end: 20200330
  4. ROSUVASTATIN CALCIUM. [Suspect]
     Active Substance: ROSUVASTATIN CALCIUM
     Indication: CEREBROVASCULAR DISORDER
     Dosage: 1 TABLET
     Route: 048
     Dates: start: 20200314, end: 20200328
  5. BUTYLPHTHALIDE [Suspect]
     Active Substance: BUTYLPHTHALIDE
     Indication: CEREBROVASCULAR DISORDER
     Dosage: 100 ML, BID
     Route: 042
     Dates: start: 20200314, end: 20200328

REACTIONS (1)
  - Hepatic function abnormal [Recovering/Resolving]

NARRATIVE: CASE EVENT DATE: 20200323
